FAERS Safety Report 24677007 (Version 1)
Quarter: 2024Q4

REPORT INFORMATION
  Report Type: Spontaneous
  Country: US (occurrence: US)
  Receive Date: 20241128
  Receipt Date: 20241128
  Transmission Date: 20250114
  Serious: Yes (Life-Threatening, Hospitalization)
  Sender: STRIDES
  Company Number: US-STRIDES ARCOLAB LIMITED-2024SP015398

PATIENT

DRUGS (3)
  1. FLUOXETINE [Suspect]
     Active Substance: FLUOXETINE HYDROCHLORIDE
     Indication: Depression
     Dosage: UNK (UNKNOWN SMALL AMOUNT OF FLUOXETINE)
     Route: 048
  2. LAMOTRIGINE [Suspect]
     Active Substance: LAMOTRIGINE
     Indication: Depression
     Dosage: 6 GRAM, TOTAL (INTENTIONALLY INGESTED A TOTAL OF 6G)
     Route: 048
  3. LURASIDONE [Suspect]
     Active Substance: LURASIDONE
     Indication: Depression
     Dosage: UNK (UNKNOWN SMALL AMOUNT OF LURASIDONE)
     Route: 048

REACTIONS (1)
  - Intentional product misuse [Unknown]
